FAERS Safety Report 25207261 (Version 2)
Quarter: 2025Q4

REPORT INFORMATION
  Report Type: Spontaneous
  Country: EU (occurrence: EU)
  Receive Date: 20250417
  Receipt Date: 20251111
  Transmission Date: 20260117
  Serious: Yes (Other)
  Sender: RANBAXY
  Company Number: EU-SUN PHARMACEUTICAL INDUSTRIES LTD-2025RR-504197

PATIENT
  Age: 24 Year
  Sex: Female

DRUGS (8)
  1. ZOLEDRONIC ACID [Suspect]
     Active Substance: ZOLEDRONIC ACID
     Indication: Prophylaxis
     Dosage: 4 MILLIGRAM, DAILY
     Route: 040
  2. ZOLEDRONIC ACID [Suspect]
     Active Substance: ZOLEDRONIC ACID
     Indication: Breast cancer metastatic
     Dosage: DAY 1, EVERY 28 DAYS; CYCLICAL
     Route: 065
  3. PACLITAXEL [Suspect]
     Active Substance: PACLITAXEL
     Indication: Breast cancer
     Dosage: 80 MILLIGRAM PER CUBIC METRE
     Route: 040
  4. PACLITAXEL [Suspect]
     Active Substance: PACLITAXEL
     Indication: Breast cancer metastatic
     Dosage: FOR 3 OF 4?WEEKS
     Route: 040
  5. CARBOPLATIN [Suspect]
     Active Substance: CARBOPLATIN
     Indication: Breast cancer
     Dosage: 2 MILLIGRAM PER MILLILITRE
     Route: 040
  6. CARBOPLATIN [Suspect]
     Active Substance: CARBOPLATIN
     Indication: Breast cancer metastatic
     Dosage: AUC OF 2?MG/ML PER MIN. FOR 3 OF 4?WEEKS
     Route: 040
  7. TRASTUZUMAB [Suspect]
     Active Substance: TRASTUZUMAB
     Indication: Breast cancer
     Dosage: 4 MILLIGRAM/KILOGRAM
     Route: 040
  8. TRASTUZUMAB [Suspect]
     Active Substance: TRASTUZUMAB
     Indication: Breast cancer metastatic
     Dosage: LOADING DOSE DAY?1
     Route: 040

REACTIONS (6)
  - Therapy partial responder [Unknown]
  - Alopecia [Unknown]
  - Neutropenia [Unknown]
  - Anaemia [Unknown]
  - Neuropathy peripheral [Unknown]
  - Disease progression [Unknown]
